FAERS Safety Report 20622214 (Version 1)
Quarter: 2022Q1

REPORT INFORMATION
  Report Type: Spontaneous
  Country: US (occurrence: US)
  Receive Date: 20220322
  Receipt Date: 20220322
  Transmission Date: 20220423
  Serious: No
  Sender: FDA-Public Use
  Company Number: US-MYLANLABS-2022M1019709

PATIENT
  Age: 51 Year
  Sex: Female
  Weight: 65.77 kg

DRUGS (7)
  1. ESTRADIOL TRANSDERMAL SYSTEM [Suspect]
     Active Substance: ESTRADIOL
     Indication: Hormone replacement therapy
     Dosage: 0.05 MILLIGRAM, QD (ONCE WEEKLY)
     Route: 062
     Dates: start: 20220228
  2. ZOLMITRIPTAN [Concomitant]
     Active Substance: ZOLMITRIPTAN
     Indication: Migraine
     Dosage: 2.5 MILLIGRAM
     Route: 048
  3. AMITRIPTYLINE [Concomitant]
     Active Substance: AMITRIPTYLINE
     Dosage: 10 MILLIGRAM
     Route: 050
  4. NASACORT [Concomitant]
     Active Substance: TRIAMCINOLONE ACETONIDE
     Indication: Hypersensitivity
     Dosage: 55 MICROGRAM
     Route: 045
  5. VIT. D3 + CORAL CALCIUM [Concomitant]
     Dosage: UNK
     Route: 048
  6. TYLENOL [Concomitant]
     Active Substance: ACETAMINOPHEN
     Dosage: 1000 MICROGRAM
     Route: 048
  7. IBUPROFEN [Concomitant]
     Active Substance: IBUPROFEN
     Indication: Muscle spasms
     Dosage: 400 MILLIGRAM, EVERY 4 HOURS

REACTIONS (3)
  - Application site erythema [Unknown]
  - Abdominal pain [Unknown]
  - Breast tenderness [Unknown]

NARRATIVE: CASE EVENT DATE: 20220228
